FAERS Safety Report 5912968-2 (Version None)
Quarter: 2008Q4

REPORT INFORMATION
  Report Type: 
  Country: None (occurrence: None)
  Receive Date: 20081008
  Receipt Date: 20080930
  Transmission Date: 20090506
  Serious: Yes (Other)
  Sender: FDA-Public Use
  Company Number: US-PFIZER INC-2008083509

PATIENT
  Sex: Female
  Weight: 117.9 kg

DRUGS (4)
  1. CHANTIX [Suspect]
     Indication: SMOKING CESSATION THERAPY
     Dates: start: 20080801
  2. TRILEPTAL [Concomitant]
  3. CELEXA [Concomitant]
  4. ABILIFY [Concomitant]

REACTIONS (5)
  - CRYING [None]
  - DEPRESSED MOOD [None]
  - FEELING JITTERY [None]
  - HALLUCINATION, AUDITORY [None]
  - HYPERSOMNIA [None]
